FAERS Safety Report 8990562 (Version 1)
Quarter: 2012Q4

REPORT INFORMATION
  Report Type: 
  Country: IT (occurrence: IT)
  Receive Date: 20121228
  Receipt Date: 20121228
  Transmission Date: 20130627
  Serious: Yes (Hospitalization)
  Sender: FDA-Public Use
  Company Number: IT-BRISTOL-MYERS SQUIBB COMPANY-17225897

PATIENT
  Age: 77 Year
  Sex: Female

DRUGS (7)
  1. COUMADIN TABS 5 MG [Suspect]
     Indication: THROMBOSIS PROPHYLAXIS
     Dosage: 1df= 1 dosage unit
     Route: 048
     Dates: start: 20120101, end: 20120429
  2. FUROSEMIDE [Concomitant]
     Dosage: 1df= 1 dosage unit
     Route: 048
  3. LOSARTAN POTASSIUM [Concomitant]
     Dosage: 1df= 1 dosage unit
     Route: 048
  4. SPIRONOLACTONE [Concomitant]
     Route: 048
  5. PANTOPRAZOLE SODIUM [Concomitant]
     Dosage: 1df= 1 dosage unit
     Route: 048
  6. ACETYLCYSTEINE [Concomitant]
  7. CONGESCOR [Concomitant]
     Route: 048

REACTIONS (4)
  - Anaemia [Recovered/Resolved]
  - Pain [Recovered/Resolved]
  - Tremor [Recovered/Resolved]
  - Vomiting [Recovered/Resolved]
